FAERS Safety Report 15507155 (Version 1)
Quarter: 2018Q4

REPORT INFORMATION
  Report Type: Spontaneous
  Country: US (occurrence: US)
  Receive Date: 20181016
  Receipt Date: 20181016
  Transmission Date: 20190205
  Serious: No
  Sender: FDA-Public Use
  Company Number: US-MYLANLABS-2018M1073060

PATIENT
  Sex: Male

DRUGS (1)
  1. EMSAM [Suspect]
     Active Substance: SELEGILINE
     Indication: PRODUCT USED FOR UNKNOWN INDICATION
     Route: 062

REACTIONS (4)
  - Dry skin [Unknown]
  - Application site pruritus [Recovered/Resolved]
  - Skin hypertrophy [Unknown]
  - Application site erythema [Recovered/Resolved]
